FAERS Safety Report 24133609 (Version 2)
Quarter: 2024Q3

REPORT INFORMATION
  Report Type: Spontaneous
  Country: US (occurrence: US)
  Receive Date: 20240724
  Receipt Date: 20240912
  Transmission Date: 20241016
  Serious: Yes (Other)
  Sender: PFIZER
  Company Number: US-PFIZER INC-202400219060

PATIENT
  Age: 18 Year
  Sex: Male

DRUGS (1)
  1. BENEFIX [Suspect]
     Active Substance: COAGULATION FACTOR IX RECOMBINANT HUMAN\ISOPROPYL ALCOHOL
     Indication: Haemorrhage
     Dosage: 8500 IU +/-10% OF DOSES: 4 (100 IU/KG DAILY X 1 ON-DEMAND), INFUSE

REACTIONS (2)
  - Haemarthrosis [Unknown]
  - Ligament sprain [Unknown]
